FAERS Safety Report 14922656 (Version 1)
Quarter: 2018Q2

REPORT INFORMATION
  Report Type: Report from Study
  Country: None (occurrence: US)
  Receive Date: 20180522
  Receipt Date: 20180522
  Transmission Date: 20180711
  Serious: Yes (Other)
  Sender: FDA-Public Use
  Company Number: US-ABBVIE-18K-163-2361266-00

PATIENT
  Sex: Male

DRUGS (1)
  1. HUMIRA [Suspect]
     Active Substance: ADALIMUMAB
     Indication: PSORIATIC ARTHROPATHY
     Route: 058

REACTIONS (7)
  - Syncope [Recovered/Resolved]
  - Erythema [Unknown]
  - Pallor [Unknown]
  - Hyperhidrosis [Unknown]
  - Fall [Unknown]
  - Loss of consciousness [Unknown]
  - Nervousness [Unknown]
